FAERS Safety Report 6662366-1 (Version None)
Quarter: 2010Q1

REPORT INFORMATION
  Report Type: 
  Country: None (occurrence: None)
  Receive Date: 20100331
  Receipt Date: 20100108
  Transmission Date: 20100710
  Serious: No
  Sender: FDA-Public Use
  Company Number: US-ABBOTT-10P-163-0618866-00

PATIENT
  Sex: Female
  Weight: 65.83 kg

DRUGS (2)
  1. LUPRON DEPOT [Suspect]
     Indication: UTERINE LEIOMYOMA
     Route: 030
     Dates: start: 20091001, end: 20091201
  2. SYNTHROID [Concomitant]
     Indication: THYROIDECTOMY
     Dates: start: 20000101

REACTIONS (1)
  - HOT FLUSH [None]
